FAERS Safety Report 13544827 (Version 2)
Quarter: 2017Q3

REPORT INFORMATION
  Report Type: Spontaneous
  Country: CH (occurrence: CH)
  Receive Date: 20170515
  Receipt Date: 20170726
  Transmission Date: 20171127
  Serious: Yes (Other)
  Sender: FDA-Public Use
  Company Number: CH-B.I. PHARMACEUTICALS,INC./RIDGEFIELD-2017-BI-026490

PATIENT
  Age: 18 Year
  Sex: Male

DRUGS (1)
  1. CATAPRESAN [Suspect]
     Active Substance: CLONIDINE
     Indication: PRODUCT USED FOR UNKNOWN INDICATION
     Route: 065

REACTIONS (4)
  - Seizure [Unknown]
  - Adrenocortical insufficiency acute [Unknown]
  - Insomnia [Unknown]
  - Agitation [Unknown]
